FAERS Safety Report 8995135 (Version 1)
Quarter: 2012Q4

REPORT INFORMATION
  Report Type: Spontaneous
  Country: US (occurrence: None)
  Receive Date: 20121228
  Receipt Date: 20121228
  Transmission Date: 20130627
  Serious: Yes (Hospitalization)
  Sender: FDA-Public Use
  Company Number: None

PATIENT
  Age: 74 Year
  Sex: Male
  Weight: 83.5 kg

DRUGS (2)
  1. WARFARIN [Suspect]
     Indication: ATRIAL FIBRILLATION
     Dosage: MG PO
     Route: 048
     Dates: start: 20081208, end: 20121125
  2. WARFARIN [Suspect]
     Indication: MITRAL REGURGITATION
     Dosage: MG PO
     Route: 048
     Dates: start: 20081208, end: 20121125

REACTIONS (1)
  - Haemorrhage [None]
